FAERS Safety Report 25622838 (Version 1)
Quarter: 2025Q3

REPORT INFORMATION
  Report Type: Spontaneous
  Country: JP (occurrence: JP)
  Receive Date: 20250730
  Receipt Date: 20250730
  Transmission Date: 20251020
  Serious: Yes (Hospitalization)
  Sender: NOVO NORDISK
  Company Number: JP-NOVOPROD-887534

PATIENT
  Weight: 2.118 kg

DRUGS (5)
  1. NOVORAPID [Suspect]
     Active Substance: INSULIN ASPART
     Indication: Type 2 diabetes mellitus
     Route: 064
  2. LUSEOGLIFLOZIN [Concomitant]
     Active Substance: LUSEOGLIFLOZIN
     Route: 064
  3. SAXAGLIPTIN [Concomitant]
     Active Substance: SAXAGLIPTIN
     Route: 064
  4. ATORVASTATIN [Concomitant]
     Active Substance: ATORVASTATIN
     Route: 064
  5. URSODIOL [Concomitant]
     Active Substance: URSODIOL
     Route: 064

REACTIONS (2)
  - Low birth weight baby [Unknown]
  - Foetal exposure during pregnancy [Recovered/Resolved]
